FAERS Safety Report 7433503-6 (Version None)
Quarter: 2011Q2

REPORT INFORMATION
  Report Type: 
  Country: None (occurrence: None)
  Receive Date: 20110422
  Receipt Date: 20110318
  Transmission Date: 20111010
  Serious: No
  Sender: FDA-Public Use
  Company Number: US-MUTUAL PHARMACEUTICAL COMPANY, INC.-CLCY20110031

PATIENT
  Age: 86 Year
  Sex: Female
  Weight: 48.578 kg

DRUGS (1)
  1. COLCRYS [Suspect]
     Indication: GOUT
     Route: 048
     Dates: start: 20110313, end: 20110318

REACTIONS (2)
  - POLLAKIURIA [None]
  - MUSCULAR WEAKNESS [None]
